FAERS Safety Report 12998206 (Version 1)
Quarter: 2016Q4

REPORT INFORMATION
  Report Type: Spontaneous
  Country: US (occurrence: US)
  Receive Date: 20161202
  Receipt Date: 20161202
  Transmission Date: 20170207
  Serious: Yes (Other)
  Sender: FDA-Public Use
  Company Number: None

PATIENT
  Age: 38 Year
  Sex: Female
  Weight: 49.5 kg

DRUGS (2)
  1. ENBREL [Suspect]
     Active Substance: ETANERCEPT
     Indication: RHEUMATOID ARTHRITIS
     Dosage: ?          OTHER FREQUENCY:EVERY 2 WEEKS;?
     Route: 058
     Dates: start: 20161123, end: 20161202
  2. METHOTREXATE. [Concomitant]
     Active Substance: METHOTREXATE

REACTIONS (8)
  - Injection site erythema [None]
  - Nausea [None]
  - Urticaria [None]
  - Cellulitis [None]
  - Migraine [None]
  - Injection site bruising [None]
  - Vomiting [None]
  - Injection site cellulitis [None]

NARRATIVE: CASE EVENT DATE: 20161202
